FAERS Safety Report 14983589 (Version 1)
Quarter: 2018Q2

REPORT INFORMATION
  Report Type: Spontaneous
  Country: IT (occurrence: IT)
  Receive Date: 20180607
  Receipt Date: 20180607
  Transmission Date: 20180711
  Serious: Yes (Hospitalization)
  Sender: FDA-Public Use
  Company Number: IT-SA-2018SA145032

PATIENT
  Age: 61 Year
  Sex: Male

DRUGS (5)
  1. LANTUS [Suspect]
     Active Substance: INSULIN GLARGINE
  2. LASIX + K [Concomitant]
     Active Substance: FUROSEMIDE\POTASSIUM CHLORIDE
     Dosage: 50 MG
  3. HUMALOG [Suspect]
     Active Substance: INSULIN LISPRO
  4. LUVION [CANRENOIC ACID] [Concomitant]
     Dosage: 100 MG
  5. UROREC [Concomitant]
     Active Substance: SILODOSIN

REACTIONS (2)
  - Hyperglycaemia [Unknown]
  - Sopor [Unknown]

NARRATIVE: CASE EVENT DATE: 20180306
